FAERS Safety Report 5505883-X (Version None)
Quarter: 2007Q4

REPORT INFORMATION
  Report Type: 
  Country: None (occurrence: None)
  Receive Date: 20071102
  Receipt Date: 20071023
  Transmission Date: 20080405
  Serious: Yes (Hospitalization, Other)
  Sender: FDA-Public Use
  Company Number: US-PFIZER INC-2007090324

PATIENT
  Sex: Female
  Weight: 90.909 kg

DRUGS (9)
  1. CHANTIX [Suspect]
     Indication: EX-SMOKER
     Dosage: TEXT:1MG BID EVERYDAY TDD:2MG
     Dates: start: 20071010, end: 20071022
  2. AVELOX [Interacting]
     Indication: DIZZINESS
     Dosage: TEXT:400MG
     Dates: start: 20070901, end: 20071022
  3. BENADRYL [Suspect]
     Indication: HYPERSENSITIVITY
     Dosage: TEXT:50MG
  4. IMDUR [Concomitant]
     Indication: CARDIAC DISORDER
  5. VERAMYST [Concomitant]
  6. PROZAC [Concomitant]
     Indication: DEPRESSION
  7. NEXIUM [Concomitant]
     Indication: STOMACH DISCOMFORT
  8. ACETYLSALICYLIC ACID SRT [Concomitant]
  9. CRESTOR [Concomitant]
     Indication: BLOOD CHOLESTEROL INCREASED

REACTIONS (19)
  - ADVERSE DRUG REACTION [None]
  - ANXIETY [None]
  - BLOOD PRESSURE DECREASED [None]
  - BURNING SENSATION [None]
  - COUGH [None]
  - DRUG INTERACTION [None]
  - DYSPHONIA [None]
  - DYSPNOEA [None]
  - GINGIVAL DISORDER [None]
  - GINGIVAL INFECTION [None]
  - HEADACHE [None]
  - HYPERSENSITIVITY [None]
  - HYPERSOMNIA [None]
  - MOUTH ULCERATION [None]
  - OXYGEN SATURATION DECREASED [None]
  - PRURITUS [None]
  - RASH GENERALISED [None]
  - SWELLING FACE [None]
  - TOOTHACHE [None]
